FAERS Safety Report 12139052 (Version 1)
Quarter: 2016Q1

REPORT INFORMATION
  Report Type: Spontaneous
  Country: US (occurrence: US)
  Receive Date: 20160302
  Receipt Date: 20160302
  Transmission Date: 20160526
  Serious: No
  Sender: FDA-Public Use
  Company Number: CHPA2016US002731

PATIENT
  Age: 65 Year
  Sex: Male

DRUGS (1)
  1. VOLTAREN [Suspect]
     Active Substance: DICLOFENAC SODIUM
     Indication: MUSCLE STRAIN
     Dosage: 6 G, TID TO QID
     Route: 061
     Dates: start: 20160212, end: 201602

REACTIONS (7)
  - Wrong technique in product usage process [Unknown]
  - Incorrect dose administered [Unknown]
  - Inappropriate schedule of drug administration [Unknown]
  - Off label use [Unknown]
  - Rash [Recovering/Resolving]
  - Pruritus [Recovered/Resolved]
  - Therapeutic response unexpected [Unknown]

NARRATIVE: CASE EVENT DATE: 201602
